FAERS Safety Report 14850971 (Version 6)
Quarter: 2019Q2

REPORT INFORMATION
  Report Type: Report from Study
  Country: None (occurrence: US)
  Receive Date: 20180506
  Receipt Date: 20190429
  Transmission Date: 20190711
  Serious: Yes (Hospitalization, Other)
  Sender: FDA-Public Use
  Company Number: US-ABBVIE-18K-163-2339895-00

PATIENT
  Age: 72 Year
  Sex: Female

DRUGS (3)
  1. HUMIRA [Suspect]
     Active Substance: ADALIMUMAB
     Indication: RHEUMATOID ARTHRITIS
     Route: 058
     Dates: end: 2018
  2. AUGMENTIN [Suspect]
     Active Substance: AMOXICILLIN\CLAVULANATE POTASSIUM
     Indication: PRODUCT USED FOR UNKNOWN INDICATION
     Route: 065
  3. HUMIRA [Suspect]
     Active Substance: ADALIMUMAB
     Route: 058
     Dates: start: 201805

REACTIONS (11)
  - Thrombosis [Recovered/Resolved]
  - Injection site pain [Not Recovered/Not Resolved]
  - Renal cyst [Not Recovered/Not Resolved]
  - Diarrhoea [Recovered/Resolved]
  - Gait inability [Unknown]
  - Pulmonary thrombosis [Recovered/Resolved]
  - Renal disorder [Unknown]
  - Nasopharyngitis [Recovered/Resolved]
  - Spinal fusion surgery [Not Recovered/Not Resolved]
  - Weight decreased [Recovered/Resolved]
  - Sinusitis [Recovered/Resolved]

NARRATIVE: CASE EVENT DATE: 201803
